FAERS Safety Report 18556367 (Version 2)
Quarter: 2021Q1

REPORT INFORMATION
  Report Type: Spontaneous
  Country: IR (occurrence: IR)
  Receive Date: 20201128
  Receipt Date: 20210102
  Transmission Date: 20210419
  Serious: Yes (Other)
  Sender: FDA-Public Use
  Company Number: IR-ACCORD-209261

PATIENT
  Age: 67 Year
  Sex: Male

DRUGS (1)
  1. CLOPIDOGREL SANOFI CO (CLOPIDOGREL BISULFATE) [Suspect]
     Active Substance: CLOPIDOGREL BISULFATE
     Indication: ANTIPLATELET THERAPY

REACTIONS (2)
  - Drug-induced liver injury [Recovered/Resolved]
  - Cholestasis [Recovered/Resolved]
